FAERS Safety Report 11137524 (Version 1)
Quarter: 2015Q2

REPORT INFORMATION
  Report Type: Spontaneous
  Country: JP (occurrence: JP)
  Receive Date: 20150526
  Receipt Date: 20150526
  Transmission Date: 20150821
  Serious: Yes (Life-Threatening, Hospitalization)
  Sender: FDA-Public Use
  Company Number: JP-ELI_LILLY_AND_COMPANY-JP201504008800

PATIENT
  Age: 67 Year
  Sex: Male
  Weight: 69 kg

DRUGS (19)
  1. BAYASPIRIN [Suspect]
     Active Substance: ASPIRIN
     Indication: ANGINA PECTORIS
     Dosage: UNK
     Route: 065
  2. JANUVIA [Concomitant]
     Active Substance: SITAGLIPTIN PHOSPHATE
     Dosage: UNK
     Route: 065
  3. ALINAMIN F                         /00257801/ [Concomitant]
     Dosage: UNK
     Route: 065
  4. EFIENT [Suspect]
     Active Substance: PRASUGREL HYDROCHLORIDE
     Indication: ANGINA PECTORIS
     Dosage: 20 MG, SINGLE
     Route: 048
     Dates: start: 20150320, end: 20150320
  5. LOXONIN [Suspect]
     Active Substance: LOXOPROFEN SODIUM
     Dosage: 60 MG, BID
     Route: 048
     Dates: start: 20150401, end: 20150414
  6. CARVEDILOL. [Concomitant]
     Active Substance: CARVEDILOL
     Dosage: UNK
     Route: 065
  7. NICORANDIL [Concomitant]
     Active Substance: NICORANDIL
     Dosage: UNK
     Route: 065
  8. ITOROL [Concomitant]
     Active Substance: ISOSORBIDE MONONITRATE
     Dosage: 20 MG, BID
     Route: 048
     Dates: start: 20150321
  9. EFIENT [Suspect]
     Active Substance: PRASUGREL HYDROCHLORIDE
     Dosage: 3.75 MG, QD
     Route: 048
     Dates: start: 20150321, end: 20150415
  10. OLMETEC [Concomitant]
     Active Substance: OLMESARTAN MEDOXOMIL
     Dosage: UNK
     Route: 065
  11. REBAMIPIDE [Concomitant]
     Active Substance: REBAMIPIDE
     Dosage: UNK
     Route: 065
  12. MEVATORTE [Concomitant]
     Active Substance: PRAVASTATIN SODIUM
     Dosage: UNK
     Route: 065
  13. LOXONIN [Suspect]
     Active Substance: LOXOPROFEN SODIUM
     Indication: BACK PAIN
     Dosage: 60 MG, QD
     Route: 048
     Dates: start: 20150321, end: 20150331
  14. BAYASPIRIN [Suspect]
     Active Substance: ASPIRIN
     Dosage: 100 MG, QD
     Route: 048
     Dates: start: 20150420
  15. ISOSORBIDE DINITRATE. [Concomitant]
     Active Substance: ISOSORBIDE DINITRATE
     Dosage: UNK
     Route: 065
     Dates: start: 20150321
  16. BAYASPIRIN [Suspect]
     Active Substance: ASPIRIN
     Dosage: 100 MG, QD
     Route: 048
     Dates: start: 20150316, end: 20150415
  17. MYONAL                             /01071502/ [Concomitant]
     Dosage: UNK
     Route: 065
  18. EFIENT [Suspect]
     Active Substance: PRASUGREL HYDROCHLORIDE
     Dosage: 3.75 MG, QD
     Dates: start: 20150420
  19. NEXIUM [Concomitant]
     Active Substance: ESOMEPRAZOLE MAGNESIUM
     Dosage: 20 MG, QD
     Route: 065
     Dates: start: 20150321

REACTIONS (2)
  - Gastrointestinal haemorrhage [Recovered/Resolved]
  - Gastric ulcer [Recovered/Resolved]

NARRATIVE: CASE EVENT DATE: 20150415
